FAERS Safety Report 4662529-0 (Version None)
Quarter: 2005Q2

REPORT INFORMATION
  Report Type: 
  Country: None (occurrence: None)
  Receive Date: 20050516
  Receipt Date: 20050506
  Transmission Date: 20051028
  Serious: Yes (Other)
  Sender: FDA-Public Use
  Company Number: JP-ROCHE-404187

PATIENT
  Age: 15 Year
  Sex: Female

DRUGS (1)
  1. TAMIFLU [Suspect]
     Dosage: DOSE RECEIVED ON THE EVENINGS OF 27 AND 29 APR 2005.
     Route: 048
     Dates: start: 20050427, end: 20050429

REACTIONS (2)
  - GINGIVAL BLEEDING [None]
  - STOMATITIS [None]
